FAERS Safety Report 15253300 (Version 1)
Quarter: 2018Q3

REPORT INFORMATION
  Report Type: Spontaneous
  Country: ZA (occurrence: ZA)
  Receive Date: 20180807
  Receipt Date: 20180807
  Transmission Date: 20181010
  Serious: Yes (Other)
  Sender: FDA-Public Use
  Company Number: PHHY2018ZA047440

PATIENT
  Sex: Female

DRUGS (1)
  1. TAREG [Suspect]
     Active Substance: VALSARTAN
     Indication: PRODUCT USED FOR UNKNOWN INDICATION
     Dosage: UNK (8 YEARS AGO)
     Route: 065

REACTIONS (12)
  - Viral infection [Unknown]
  - Hypotension [Unknown]
  - Type I hypersensitivity [Unknown]
  - Rash [Unknown]
  - Urticaria [Unknown]
  - Wheezing [Unknown]
  - Sneezing [Unknown]
  - Pruritus [Unknown]
  - Nasopharyngitis [Unknown]
  - Asthma [Unknown]
  - Cough [Unknown]
  - Tracheal disorder [Unknown]
